FAERS Safety Report 12543616 (Version 1)
Quarter: 2016Q3

REPORT INFORMATION
  Report Type: Spontaneous
  Country: US (occurrence: None)
  Receive Date: 20160708
  Receipt Date: 20160708
  Transmission Date: 20161109
  Serious: No
  Sender: FDA-Public Use
  Company Number: None

PATIENT
  Age: 6 Year
  Sex: Male

DRUGS (1)
  1. PIPERACILLIN/TAZOBACTAM, 4.5 GM FRESNIUS KABI [Suspect]
     Active Substance: PIPERACILLIN SODIUM\TAZOBACTAM SODIUM
     Route: 040

REACTIONS (2)
  - Product preparation error [None]
  - Product label confusion [None]

NARRATIVE: CASE EVENT DATE: 20160602
